FAERS Safety Report 16434267 (Version 2)
Quarter: 2019Q2

REPORT INFORMATION
  Report Type: Spontaneous
  Country: US (occurrence: US)
  Receive Date: 20190614
  Receipt Date: 20190618
  Transmission Date: 20190711
  Serious: Yes (Other)
  Sender: FDA-Public Use
  Company Number: US-ASTRAZENECA-2018SF21516

PATIENT
  Age: 19885 Day
  Sex: Female
  Weight: 96.6 kg

DRUGS (19)
  1. PROTONIX [Suspect]
     Active Substance: PANTOPRAZOLE SODIUM
     Route: 065
  2. ERGOCALCIFEROL. [Concomitant]
     Active Substance: ERGOCALCIFEROL
  3. NITROGLYCERIN. [Concomitant]
     Active Substance: NITROGLYCERIN
  4. VITAMIN D [Concomitant]
     Active Substance: VITAMIN D NOS
  5. PRILOSEC [Suspect]
     Active Substance: OMEPRAZOLE MAGNESIUM
     Route: 048
     Dates: start: 20080101, end: 20141231
  6. PRILOSEC OTC [Suspect]
     Active Substance: OMEPRAZOLE MAGNESIUM
     Route: 048
     Dates: start: 20120101, end: 20141231
  7. NIASPAN [Concomitant]
     Active Substance: NIACIN
  8. FERRITIN [Concomitant]
     Active Substance: FERRITIN
  9. NEXIUM [Suspect]
     Active Substance: ESOMEPRAZOLE MAGNESIUM
     Route: 065
     Dates: start: 20020305, end: 20141231
  10. PREVACID [Suspect]
     Active Substance: LANSOPRAZOLE
     Route: 065
     Dates: start: 20010629, end: 20011214
  11. NEXIUM 24HR [Suspect]
     Active Substance: ESOMEPRAZOLE MAGNESIUM
     Route: 065
  12. SPIRONOLACTONE. [Concomitant]
     Active Substance: SPIRONOLACTONE
  13. BABY ASPIRIN [Concomitant]
     Active Substance: ASPIRIN
  14. AMARYL [Concomitant]
     Active Substance: GLIMEPIRIDE
  15. RANITIDINE. [Concomitant]
     Active Substance: RANITIDINE
  16. DIOVAN [Concomitant]
     Active Substance: VALSARTAN
  17. PREVACID 24 HR [Suspect]
     Active Substance: LANSOPRAZOLE
     Route: 065
     Dates: start: 20120101, end: 20141231
  18. LASIX [Concomitant]
     Active Substance: FUROSEMIDE
  19. COREG [Concomitant]
     Active Substance: CARVEDILOL

REACTIONS (3)
  - Renal injury [Unknown]
  - Acute kidney injury [Unknown]
  - Chronic kidney disease [Unknown]

NARRATIVE: CASE EVENT DATE: 20130628
